FAERS Safety Report 11474227 (Version 1)
Quarter: 2015Q3

REPORT INFORMATION
  Report Type: Report from Study
  Country: FR (occurrence: FR)
  Receive Date: 20150908
  Receipt Date: 20150908
  Transmission Date: 20151125
  Serious: No
  Sender: FDA-Public Use
  Company Number: FR-JAZZ-2013-FR-005159

PATIENT
  Age: 18 Year
  Sex: Female

DRUGS (10)
  1. XYREM [Suspect]
     Active Substance: SODIUM OXYBATE
     Dosage: 3 G, BID
     Route: 048
     Dates: start: 20140120
  2. XYREM [Suspect]
     Active Substance: SODIUM OXYBATE
     Dosage: 4.25 G, QD
     Route: 048
     Dates: start: 20140303, end: 20140309
  3. MELATONINE ISOTEC [Concomitant]
     Indication: HYPERSOMNIA
     Dosage: 3 MG, DAILY DOSE
     Route: 048
     Dates: start: 20131128
  4. XYREM [Suspect]
     Active Substance: SODIUM OXYBATE
     Dosage: 4.5 G, BID
     Route: 048
     Dates: start: 20140310, end: 20150510
  5. MODIODAL [Concomitant]
     Active Substance: MODAFINIL
     Indication: HYPERSOMNIA
     Dosage: 1 TABLET DAILY
     Route: 048
     Dates: start: 20131128
  6. XYREM [Suspect]
     Active Substance: SODIUM OXYBATE
     Indication: HYPERSOMNIA
     Dosage: 2.25 G, BID
     Route: 048
     Dates: start: 20131125
  7. XYREM [Suspect]
     Active Substance: SODIUM OXYBATE
     Dosage: 4 G, BID
     Route: 048
     Dates: start: 2014
  8. XYREM [Suspect]
     Active Substance: SODIUM OXYBATE
     Dosage: UNKNOWN DOSE
     Route: 048
  9. XYREM [Suspect]
     Active Substance: SODIUM OXYBATE
     Dosage: 2.75 G, BID
     Route: 048
  10. XYREM [Suspect]
     Active Substance: SODIUM OXYBATE
     Dosage: UNK, PROGRESSIVE DOSE INCREASE
     Route: 048

REACTIONS (6)
  - Nausea [Recovered/Resolved]
  - Headache [Recovered/Resolved]
  - Disorientation [Recovered/Resolved]
  - Inappropriate schedule of drug administration [Recovered/Resolved]
  - Product use issue [Unknown]
  - Sense of oppression [Recovered/Resolved]

NARRATIVE: CASE EVENT DATE: 20131128
